FAERS Safety Report 12184253 (Version 1)
Quarter: 2016Q1

REPORT INFORMATION
  Report Type: Spontaneous
  Country: US (occurrence: US)
  Receive Date: 20160316
  Receipt Date: 20160316
  Transmission Date: 20160526
  Serious: No
  Sender: FDA-Public Use
  Company Number: US-JNJFOC-20160122256

PATIENT
  Age: 56 Year
  Sex: Female
  Weight: 74.39 kg

DRUGS (3)
  1. LEVOTHYROXINE. [Concomitant]
     Active Substance: LEVOTHYROXINE
     Indication: THYROID DISORDER
     Route: 065
  2. KETOCONAZOLE SHAMPOO [Suspect]
     Active Substance: KETOCONAZOLE
     Indication: PSORIASIS
     Route: 061
     Dates: start: 20160117, end: 20160127
  3. FLECAINIDE [Concomitant]
     Active Substance: FLECAINIDE
     Route: 065

REACTIONS (4)
  - Hair injury [Not Recovered/Not Resolved]
  - Hair texture abnormal [Unknown]
  - Hair colour changes [Unknown]
  - Alopecia [Not Recovered/Not Resolved]

NARRATIVE: CASE EVENT DATE: 20160126
